FAERS Safety Report 16357982 (Version 1)
Quarter: 2019Q2

REPORT INFORMATION
  Report Type: Report from Study
  Country: US (occurrence: US)
  Receive Date: 20190527
  Receipt Date: 20190527
  Transmission Date: 20190711
  Serious: Yes (Other)
  Sender: FDA-Public Use
  Company Number: PHEH2019US021797

PATIENT
  Age: 66 Year
  Sex: Female

DRUGS (1)
  1. PROMACTA [Suspect]
     Active Substance: ELTROMBOPAG OLAMINE
     Indication: PRODUCT USED FOR UNKNOWN INDICATION
     Route: 065
     Dates: start: 20190405

REACTIONS (11)
  - Tremor [Unknown]
  - Weight decreased [Unknown]
  - Decreased appetite [Unknown]
  - Food aversion [Unknown]
  - Confusional state [Unknown]
  - Muscle spasms [Unknown]
  - Fatigue [Unknown]
  - Abdominal pain upper [Unknown]
  - Dizziness [Unknown]
  - Pain [Unknown]
  - Nausea [Unknown]

NARRATIVE: CASE EVENT DATE: 20190405
